FAERS Safety Report 5602326-2 (Version None)
Quarter: 2008Q1

REPORT INFORMATION
  Report Type: 
  Country: None (occurrence: None)
  Receive Date: 20080125
  Receipt Date: 20080114
  Transmission Date: 20080703
  Serious: Yes (Hospitalization, Other)
  Sender: FDA-Public Use
  Company Number: US-AMGEN-QUU245033

PATIENT
  Sex: Female
  Weight: 88.1 kg

DRUGS (12)
  1. ENBREL [Suspect]
     Indication: RHEUMATOID ARTHRITIS
     Route: 058
     Dates: start: 20000928
  2. PLAVIX [Concomitant]
     Dates: start: 20060901
  3. VALIUM [Concomitant]
     Dates: start: 19980101
  4. TRICOR [Concomitant]
  5. METHADONE HCL [Concomitant]
     Dates: start: 20050101
  6. ZETIA [Concomitant]
  7. ZOCOR [Concomitant]
  8. VICODIN ES [Concomitant]
  9. DIAZEPAM [Concomitant]
  10. LASIX [Concomitant]
  11. LEVOTHYROXINE SODIUM [Concomitant]
     Dates: start: 19980101
  12. NITROGLYCERIN [Concomitant]

REACTIONS (9)
  - APNOEA [None]
  - CARDIAC PACEMAKER INSERTION [None]
  - CONTUSION [None]
  - CORONARY ARTERY BYPASS [None]
  - ELECTROCARDIOGRAM ST SEGMENT ABNORMAL [None]
  - ELECTROCARDIOGRAM ST-T SEGMENT ELEVATION [None]
  - NASOPHARYNGITIS [None]
  - SKIN ATROPHY [None]
  - STOMATITIS [None]
